FAERS Safety Report 10619925 (Version 1)
Quarter: 2014Q4

REPORT INFORMATION
  Report Type: Spontaneous
  Country: US (occurrence: US)
  Receive Date: 20141202
  Receipt Date: 20141202
  Transmission Date: 20150529
  Serious: No
  Sender: FDA-Public Use
  Company Number: US-009507513-1412USA000407

PATIENT
  Sex: Female

DRUGS (1)
  1. MIRALAX [Suspect]
     Active Substance: POLYETHYLENE GLYCOL 3350
     Indication: PRODUCT USED FOR UNKNOWN INDICATION
     Dosage: UNK, QPM
     Route: 048
     Dates: start: 201410

REACTIONS (9)
  - Nasal dryness [Unknown]
  - Product use issue [Unknown]
  - Vulvovaginal dryness [Unknown]
  - Dry eye [Unknown]
  - Underdose [Unknown]
  - Dry mouth [Unknown]
  - Drug prescribing error [Unknown]
  - Drug ineffective [Unknown]
  - Incorrect drug administration duration [Unknown]

NARRATIVE: CASE EVENT DATE: 2014
